FAERS Safety Report 9191176 (Version 1)
Quarter: 2013Q1

REPORT INFORMATION
  Report Type: Report from Study
  Country: US (occurrence: US)
  Receive Date: 20130326
  Receipt Date: 20130326
  Transmission Date: 20140127
  Serious: Yes (Hospitalization, Other)
  Sender: FDA-Public Use
  Company Number: US-BAYER-2013-035741

PATIENT
  Age: 72 Year
  Sex: Male

DRUGS (1)
  1. BETASERON [Suspect]
     Indication: RELAPSING-REMITTING MULTIPLE SCLEROSIS
     Dosage: 8 MIU, QOD
     Route: 058
     Dates: start: 20020724

REACTIONS (3)
  - Hepatic lesion [Not Recovered/Not Resolved]
  - Cholelithiasis [Recovering/Resolving]
  - Abdominal pain [Recovering/Resolving]
